FAERS Safety Report 6188557-4 (Version None)
Quarter: 2009Q2

REPORT INFORMATION
  Report Type: 
  Country: None (occurrence: None)
  Receive Date: 20090511
  Receipt Date: 20090511
  Transmission Date: 20091009
  Serious: Yes (Other)
  Sender: FDA-Public Use
  Company Number: None

PATIENT
  Age: 51 Year
  Sex: Male
  Weight: 79.3795 kg

DRUGS (2)
  1. LEVAQUIN [Suspect]
     Indication: INFECTION
     Dates: start: 20081202, end: 20081216
  2. LEVAQUIN [Suspect]
     Indication: TOOTH EXTRACTION
     Dates: start: 20081202, end: 20081216

REACTIONS (3)
  - ARTHRITIS [None]
  - ARTHROPATHY [None]
  - MUSCULOSKELETAL DISORDER [None]
